FAERS Safety Report 14852276 (Version 5)
Quarter: 2019Q3

REPORT INFORMATION
  Report Type: Spontaneous
  Country: US (occurrence: US)
  Receive Date: 20180507
  Receipt Date: 20190814
  Transmission Date: 20191004
  Serious: Yes (Hospitalization, Other)
  Sender: FDA-Public Use
  Company Number: US-PFIZER INC-2018180856

PATIENT
  Age: 70 Year
  Sex: Female
  Weight: 47 kg

DRUGS (2)
  1. EXEMESTANE. [Suspect]
     Active Substance: EXEMESTANE
     Indication: BREAST CANCER METASTATIC
     Dosage: 25 MG, 1X/DAY (25 MG ONCE A DAY, EARLIER IN THE DAY)
     Dates: start: 201804
  2. IBRANCE [Suspect]
     Active Substance: PALBOCICLIB
     Indication: BREAST CANCER METASTATIC
     Dosage: 125 MG, 1X/DAY (125 MG IN EVENING ONCE A DAY AFTER A MEAL)
     Dates: start: 201804

REACTIONS (11)
  - Dehydration [Unknown]
  - Drug resistance [Recovered/Resolved]
  - Insomnia [Recovering/Resolving]
  - Diarrhoea [Recovered/Resolved]
  - Product dose omission [Unknown]
  - Fatigue [Not Recovered/Not Resolved]
  - Nasopharyngitis [Unknown]
  - Infection [Recovered/Resolved]
  - Intentional product misuse [Unknown]
  - Vomiting [Recovered/Resolved]
  - Malaise [Unknown]

NARRATIVE: CASE EVENT DATE: 201804
